FAERS Safety Report 4684317-1 (Version None)
Quarter: 2005Q2

REPORT INFORMATION
  Report Type: 
  Country: None (occurrence: None)
  Receive Date: 20050607
  Receipt Date: 20050601
  Transmission Date: 20051028
  Serious: Yes (Other)
  Sender: FDA-Public Use
  Company Number: 2005PK00950

PATIENT
  Age: 31 Year
  Sex: Female

DRUGS (9)
  1. SEROQUEL [Suspect]
     Route: 048
     Dates: start: 20050110, end: 20050202
  2. SEROQUEL [Suspect]
     Route: 048
     Dates: start: 20050203, end: 20050206
  3. SEROQUEL [Suspect]
     Route: 048
     Dates: start: 20050207
  4. CIPRALEX [Suspect]
     Route: 048
     Dates: start: 20050110, end: 20050127
  5. CIPRALEX [Suspect]
     Route: 048
     Dates: start: 20050128
  6. TRITTICO [Concomitant]
     Route: 048
     Dates: start: 20050110
  7. ZOLDEM [Concomitant]
     Route: 048
     Dates: start: 20050110, end: 20050124
  8. GEWALCAM [Concomitant]
     Route: 048
     Dates: start: 20050110, end: 20050127
  9. GEWALCAM [Concomitant]
     Route: 048
     Dates: start: 20050128

REACTIONS (4)
  - DYSKINESIA [None]
  - PSYCHOTIC DISORDER [None]
  - SERUM SEROTONIN INCREASED [None]
  - SLEEP DISORDER [None]
